FAERS Safety Report 9492145 (Version 1)
Quarter: 2013Q3

REPORT INFORMATION
  Report Type: Spontaneous
  Country: CA (occurrence: CA)
  Receive Date: 20130830
  Receipt Date: 20130830
  Transmission Date: 20140515
  Serious: Yes (Other)
  Sender: FDA-Public Use
  Company Number: CA-JNJFOC-20130811473

PATIENT
  Age: 56 Year
  Sex: Female
  Weight: 61.24 kg

DRUGS (1)
  1. NICORETTE QUICKMIST SPRAY 1MG [Suspect]
     Indication: SMOKING CESSATION THERAPY
     Dosage: ONE SPRAY
     Route: 048
     Dates: start: 20130819, end: 20130819

REACTIONS (4)
  - Choking [Recovered/Resolved]
  - Throat tightness [Recovered/Resolved]
  - Nausea [Recovered/Resolved]
  - Headache [Recovered/Resolved]
